FAERS Safety Report 6541792-5 (Version None)
Quarter: 2010Q1

REPORT INFORMATION
  Report Type: 
  Country: None (occurrence: None)
  Receive Date: 20100119
  Receipt Date: 20100106
  Transmission Date: 20100710
  Serious: Yes (Other)
  Sender: FDA-Public Use
  Company Number: PHHY2010BR00825

PATIENT
  Sex: Female
  Weight: 88 kg

DRUGS (16)
  1. ZELMAC [Suspect]
     Indication: IRRITABLE BOWEL SYNDROME
     Dosage: ONE TABLET IN NIGHT AND ONE IN THE MORNING.
     Route: 048
  2. ZELMAC [Suspect]
     Dosage: ONE TABLET DAILY
     Route: 048
     Dates: start: 20091201
  3. ZETSIM [Concomitant]
     Indication: BLOOD CHOLESTEROL
     Dosage: ONE TABLET AT NIGHT
     Route: 048
  4. PARACETAMOL [Concomitant]
     Indication: HEADACHE
     Dosage: UNK
  5. DORFLEX [Concomitant]
     Indication: HEADACHE
     Dosage: UNK
  6. DAFLON (DIOSMIN) [Concomitant]
     Dosage: UNK
  7. BUSCOPAN [Concomitant]
     Dosage: UNK
  8. LISADOR [Concomitant]
     Dosage: UNK
  9. ATROVERAN [Concomitant]
     Dosage: UNK
  10. SIMETHICONE [Concomitant]
     Dosage: UNK
  11. LUFTAL [Concomitant]
     Dosage: UNK
  12. LACTULOSE [Concomitant]
     Indication: INTESTINAL FUNCTIONAL DISORDER
     Route: 048
  13. SEROQUEL [Concomitant]
     Indication: BIPOLAR DISORDER
     Dosage: ONE TABLET AT NIGHT
     Route: 048
  14. XYLOCAINE [Concomitant]
  15. ANTI-INFLAMMATORY DRUGS [Concomitant]
  16. MOTILIUM [Concomitant]

REACTIONS (27)
  - ABDOMINAL PAIN [None]
  - ACTIVITIES OF DAILY LIVING IMPAIRED [None]
  - ANAL FISSURE [None]
  - ANAL HAEMORRHAGE [None]
  - BLOOD CHOLESTEROL ABNORMAL [None]
  - BLOOD PRESSURE INCREASED [None]
  - COORDINATION ABNORMAL [None]
  - DIARRHOEA [None]
  - DRUG EFFECT DECREASED [None]
  - DRY MOUTH [None]
  - DYSMENORRHOEA [None]
  - FEELING ABNORMAL [None]
  - GALLBLADDER OPERATION [None]
  - HAEMORRHOID OPERATION [None]
  - HAEMORRHOIDS [None]
  - HEADACHE [None]
  - HYPERGLYCAEMIA [None]
  - MALAISE [None]
  - MENOPAUSE [None]
  - MENSTRUATION IRREGULAR [None]
  - PROCTALGIA [None]
  - PYREXIA [None]
  - RECTAL POLYP [None]
  - RECTAL POLYPECTOMY [None]
  - STRESS [None]
  - THROAT TIGHTNESS [None]
  - VISUAL IMPAIRMENT [None]
